FAERS Safety Report 11228758 (Version 1)
Quarter: 2015Q2

REPORT INFORMATION
  Report Type: Spontaneous
  Country: TR (occurrence: None)
  Receive Date: 20150626
  Receipt Date: 20150626
  Transmission Date: 20150821
  Serious: Yes (Other)
  Sender: FDA-Public Use
  Company Number: 2015TR0335

PATIENT
  Sex: Male

DRUGS (3)
  1. COLCHICINE (COLCHICINE) (COLCHICINE) [Suspect]
     Active Substance: COLCHICINE
     Route: 064
  2. PREDNISOLONE. [Concomitant]
     Active Substance: PREDNISOLONE
  3. KINERET [Suspect]
     Active Substance: ANAKINRA
     Route: 064

REACTIONS (2)
  - Foetal exposure during pregnancy [None]
  - Thrombocytopenia neonatal [None]
